FAERS Safety Report 14211422 (Version 4)
Quarter: 2018Q1

REPORT INFORMATION
  Report Type: Spontaneous
  Country: JP (occurrence: JP)
  Receive Date: 20171121
  Receipt Date: 20180228
  Transmission Date: 20180508
  Serious: Yes (Hospitalization, Other)
  Sender: FDA-Public Use
  Company Number: JP-SA-2017SA230497

PATIENT
  Age: 50 Year
  Sex: Female

DRUGS (21)
  1. REMITCH [Concomitant]
     Active Substance: NALFURAFINE HYDROCHLORIDE
     Indication: PRURITUS
  2. FOSRENOL [Concomitant]
     Active Substance: LANTHANUM CARBONATE
  3. AZOSEMIDE [Concomitant]
     Active Substance: AZOSEMIDE
  4. NOVORAPID [Concomitant]
     Active Substance: INSULIN ASPART
  5. SOLU-CORTEF [Concomitant]
     Active Substance: HYDROCORTISONE SODIUM SUCCINATE
  6. LEVOCETIRIZINE [Suspect]
     Active Substance: LEVOCETIRIZINE
     Indication: PRURITUS GENERALISED
     Route: 048
     Dates: start: 20171024, end: 20171031
  7. FLAGYL [Suspect]
     Active Substance: METRONIDAZOLE\METRONIDAZOLE HYDROCHLORIDE
     Indication: INFECTION
     Route: 041
     Dates: start: 20171107, end: 20171108
  8. EQUA [Concomitant]
     Active Substance: VILDAGLIPTIN
  9. LYRICA [Concomitant]
     Active Substance: PREGABALIN
  10. CLOPIDOGREL SULFATE [Concomitant]
     Active Substance: CLOPIDOGREL BISULFATE
  11. FLAGYL [Suspect]
     Active Substance: METRONIDAZOLE\METRONIDAZOLE HYDROCHLORIDE
     Indication: INFECTION
     Route: 041
     Dates: start: 20171031, end: 20171106
  12. VANCOMYCIN HYDROCHLORIDE. [Concomitant]
     Active Substance: VANCOMYCIN HYDROCHLORIDE
  13. KIKLIN [Concomitant]
     Active Substance: BIXALOMER
  14. EPINASTINE HYDROCHLORIDE. [Concomitant]
     Active Substance: EPINASTINE HYDROCHLORIDE
     Indication: PRURITUS
  15. NEXIUM [Concomitant]
     Active Substance: ESOMEPRAZOLE MAGNESIUM
  16. LOXOPROFEN SODIUM [Concomitant]
     Active Substance: LOXOPROFEN SODIUM
     Route: 065
  17. MEROPENEM. [Concomitant]
     Active Substance: MEROPENEM
  18. PENTAGIN [Concomitant]
     Active Substance: PENTAZOCINE HYDROCHLORIDE
  19. INSULIN GLARGINE [Concomitant]
     Active Substance: INSULIN GLARGINE
  20. LOXOPROFEN SODIUM [Concomitant]
     Active Substance: LOXOPROFEN SODIUM
  21. CALONAL [Concomitant]
     Active Substance: ACETAMINOPHEN

REACTIONS (14)
  - Malaise [Unknown]
  - Mobility decreased [Unknown]
  - Pain [Recovering/Resolving]
  - Contraindication to medical treatment [Unknown]
  - Initial insomnia [Unknown]
  - Paraesthesia [Unknown]
  - Abdominal pain [Unknown]
  - Vomiting [Unknown]
  - Off label use [Unknown]
  - Muscle rigidity [Unknown]
  - Bruxism [Unknown]
  - Vessel puncture site infection [Recovered/Resolved]
  - Pyrexia [Unknown]
  - Anxiety [Unknown]

NARRATIVE: CASE EVENT DATE: 20171029
